FAERS Safety Report 12932835 (Version 1)
Quarter: 2016Q4

REPORT INFORMATION
  Report Type: Spontaneous
  Country: US (occurrence: US)
  Receive Date: 20161111
  Receipt Date: 20161111
  Transmission Date: 20170207
  Serious: No
  Sender: FDA-Public Use
  Company Number: US-PFIZER INC-2016522266

PATIENT
  Age: 49 Year
  Sex: Female
  Weight: 106 kg

DRUGS (1)
  1. GENOTROPIN MQ [Suspect]
     Active Substance: SOMATROPIN
     Indication: HYPOPITUITARISM
     Dosage: 0.6 MG, DAILY
     Route: 058
     Dates: start: 20151222

REACTIONS (4)
  - Arthralgia [Unknown]
  - Fluid retention [Unknown]
  - Condition aggravated [Unknown]
  - Arthritis [Unknown]
